FAERS Safety Report 6031994-9 (Version None)
Quarter: 2009Q1

REPORT INFORMATION
  Report Type: 
  Country: None (occurrence: None)
  Receive Date: 20090107
  Receipt Date: 20090105
  Transmission Date: 20090719
  Serious: Yes (Life-Threatening, Hospitalization, Other)
  Sender: FDA-Public Use
  Company Number: 2008SP020227

PATIENT
  Age: 67 Year
  Sex: Male
  Weight: 59 kg

DRUGS (8)
  1. PEG-INTRON [Suspect]
     Indication: HEPATITIS C
     Dosage: 100 MCG; QW; SC, 50 MCG; QW; SC
     Route: 058
     Dates: start: 20080701, end: 20080904
  2. PEG-INTRON [Suspect]
     Indication: HEPATITIS C
     Dosage: 100 MCG; QW; SC, 50 MCG; QW; SC
     Route: 058
     Dates: start: 20080911, end: 20080911
  3. REBETOL [Suspect]
     Indication: HEPATITIS C
     Dosage: 600 MG; QD; PO
     Route: 048
     Dates: start: 20080701, end: 20080921
  4. MAINTATE [Concomitant]
  5. ASPIRIN [Concomitant]
  6. FRANDOL [Concomitant]
  7. PANALDINE [Concomitant]
  8. LIPITOR [Concomitant]

REACTIONS (5)
  - ARTHRITIS [None]
  - COUGH [None]
  - MALAISE [None]
  - PLEURAL EFFUSION [None]
  - SYSTEMIC LUPUS ERYTHEMATOSUS [None]
